FAERS Safety Report 10027369 (Version 2)
Quarter: 2014Q2

REPORT INFORMATION
  Report Type: Spontaneous
  Country: US (occurrence: US)
  Receive Date: 20140321
  Receipt Date: 20140422
  Transmission Date: 20141212
  Serious: Yes (Hospitalization)
  Sender: FDA-Public Use
  Company Number: US-INCYTE CORPORATION-2014IN000687

PATIENT
  Age: 77 Year
  Sex: Female

DRUGS (7)
  1. JAKAFI [Suspect]
     Indication: MYELOFIBROSIS
     Dosage: 5 MG, BID
     Route: 048
  2. TRAMADOL [Concomitant]
  3. LISINOPRIL [Concomitant]
  4. ALLOPURINOL [Concomitant]
  5. PRADAXA [Concomitant]
  6. HYDROXYUREA [Concomitant]
  7. AMIODARONE [Concomitant]

REACTIONS (2)
  - Blood potassium increased [Unknown]
  - Femoral neck fracture [Not Recovered/Not Resolved]
